FAERS Safety Report 6324666-4 (Version None)
Quarter: 2009Q3

REPORT INFORMATION
  Report Type: 
  Country: None (occurrence: None)
  Receive Date: 20090824
  Receipt Date: 20090508
  Transmission Date: 20100115
  Serious: No
  Sender: FDA-Public Use
  Company Number: US-ABBOTT-09P-163-0572362-00

PATIENT
  Sex: Female
  Weight: 67.646 kg

DRUGS (7)
  1. NIASPAN [Suspect]
     Indication: BLOOD CHOLESTEROL INCREASED
     Dates: start: 20090405
  2. VESICARE [Concomitant]
     Indication: URINARY INCONTINENCE
  3. VYTORIN [Concomitant]
     Indication: DRUG USE FOR UNKNOWN INDICATION
  4. MVT [Concomitant]
     Indication: DRUG USE FOR UNKNOWN INDICATION
  5. CALCIUM [Concomitant]
     Indication: DRUG USE FOR UNKNOWN INDICATION
  6. PRESERVISION VITAMINS [Concomitant]
     Indication: DRUG USE FOR UNKNOWN INDICATION
  7. UNKNOWN BLOOD PRESSURE MEDS [Concomitant]
     Indication: BLOOD PRESSURE

REACTIONS (2)
  - CONFUSIONAL STATE [None]
  - FLUSHING [None]
